FAERS Safety Report 4270772-8 (Version None)
Quarter: 2004Q1

REPORT INFORMATION
  Report Type: 
  Country: None (occurrence: None)
  Receive Date: 20040113
  Receipt Date: 20031230
  Transmission Date: 20041129
  Serious: Yes (Hospitalization)
  Sender: FDA-Public Use
  Company Number: US-JNJFOC-20040100205

PATIENT
  Age: 49 Year
  Sex: Female
  Weight: 43.9989 kg

DRUGS (5)
  1. INFLIXIMAB (INFLIXIMAB, RECOMBINANT) LYOPHILIZED POWDER [Suspect]
     Indication: RHEUMATOID ARTHRITIS
     Dosage: 10 MG/KG, INTRAVENOUS
     Route: 042
     Dates: start: 20001025
  2. BEXTRA [Concomitant]
  3. ARAVA [Concomitant]
  4. FOSDAMAX (ALENDRONATE SODIUM) [Concomitant]
  5. ASPIRIN [Concomitant]

REACTIONS (1)
  - GASTRIC ULCER PERFORATION [None]
